FAERS Safety Report 5416615-8 (Version None)
Quarter: 2007Q3

REPORT INFORMATION
  Report Type: 
  Country: None (occurrence: None)
  Receive Date: 20070815
  Receipt Date: 20070815
  Transmission Date: 20080115
  Serious: No
  Sender: FDA-Public Use
  Company Number: None

PATIENT
  Sex: Male
  Weight: 77.1115 kg

DRUGS (2)
  1. ZOCOR [Suspect]
     Indication: HIGH DENSITY LIPOPROTEIN DECREASED
     Dosage: 40 MG 1 X DAY PO
     Route: 048
     Dates: start: 20030801, end: 20040501
  2. LOVASTATIN [Suspect]
     Indication: HIGH DENSITY LIPOPROTEIN DECREASED
     Dosage: 40 MG 1 X DAY PO
     Route: 048
     Dates: start: 20040501, end: 20050505

REACTIONS (1)
  - AMYOTROPHIC LATERAL SCLEROSIS [None]
